FAERS Safety Report 8457838-3 (Version None)
Quarter: 2012Q2

REPORT INFORMATION
  Report Type: 
  Country: None (occurrence: None)
  Receive Date: 20120622
  Receipt Date: 20120611
  Transmission Date: 20120825
  Serious: Yes (Hospitalization, Other)
  Sender: FDA-Public Use
  Company Number: AR-ACCORD-013754

PATIENT
  Age: 57 Year
  Sex: Male

DRUGS (5)
  1. LOSARTAN POTASSIUM [Concomitant]
     Indication: HYPERTENSION
  2. FENOFIBRATE [Interacting]
     Dosage: MICRONIZED FENOFIBRATE
  3. EZETIMIBE/SAMVASTATIN [Concomitant]
     Dosage: EZETIMIBE 10MG/SIMVASTATIN 20MG
  4. MYCOPHENOLATE MOFETIL [Suspect]
     Indication: IMMUNOSUPPRESSION
  5. MEPREDNISONE [Concomitant]
     Indication: IMMUNOSUPPRESSION

REACTIONS (2)
  - DRUG INTERACTION [None]
  - FEBRILE NEUTROPENIA [None]
